FAERS Safety Report 9705031 (Version 1)
Quarter: 2013Q4

REPORT INFORMATION
  Report Type: Spontaneous
  Country: US (occurrence: US)
  Receive Date: 20131122
  Receipt Date: 20131122
  Transmission Date: 20140711
  Serious: No
  Sender: FDA-Public Use
  Company Number: US-ABBVIE-13P-163-1131876-00

PATIENT
  Age: 59 Year
  Sex: Male
  Weight: 131.66 kg

DRUGS (3)
  1. ANDROGEL [Suspect]
     Indication: BLOOD TESTOSTERONE DECREASED
     Dosage: 40.5 MILLIGRAMS DAILY
     Route: 061
     Dates: start: 20130807
  2. ALLEGRA [Concomitant]
     Indication: HYPERSENSITIVITY
  3. CHOLESTYRAMINE [Concomitant]
     Indication: BILE ACID MALABSORPTION

REACTIONS (1)
  - Diarrhoea [Recovering/Resolving]
